FAERS Safety Report 15774439 (Version 2)
Quarter: 2019Q1

REPORT INFORMATION
  Report Type: Spontaneous
  Country: GB (occurrence: GB)
  Receive Date: 20181229
  Receipt Date: 20190115
  Transmission Date: 20190417
  Serious: Yes (Death, Other)
  Sender: FDA-Public Use
  Company Number: GB-US WORLDMEDS, LLC-E2B_00002836

PATIENT
  Age: 68 Year
  Sex: Female

DRUGS (7)
  1. XADAGO [Suspect]
     Active Substance: SAFINAMIDE MESYLATE
     Route: 048
     Dates: start: 20170727
  2. XADAGO [Suspect]
     Active Substance: SAFINAMIDE MESYLATE
     Indication: PARKINSON^S DISEASE
     Route: 048
     Dates: start: 20170221, end: 20170315
  3. MADOPAR [Concomitant]
     Active Substance: BENSERAZIDE HYDROCHLORIDE\LEVODOPA
     Indication: PARKINSON^S DISEASE
     Route: 048
     Dates: start: 201612
  4. OPICAPONE [Concomitant]
     Active Substance: OPICAPONE
     Indication: PARKINSON^S DISEASE
     Route: 048
     Dates: start: 20171016
  5. REQUIP [Concomitant]
     Active Substance: ROPINIROLE HYDROCHLORIDE
     Indication: PARKINSON^S DISEASE
     Route: 048
     Dates: start: 201411
  6. XADAGO [Suspect]
     Active Substance: SAFINAMIDE MESYLATE
     Route: 048
     Dates: start: 20170316, end: 20170726
  7. MADOPAR DISPERSIBLE [Concomitant]
     Indication: PARKINSON^S DISEASE
     Route: 048
     Dates: start: 2014

REACTIONS (3)
  - Pneumonia [Fatal]
  - Parkinson^s disease [Fatal]
  - Ovarian cancer metastatic [Fatal]
